FAERS Safety Report 6536674-9 (Version None)
Quarter: 2010Q1

REPORT INFORMATION
  Report Type: 
  Country: None (occurrence: None)
  Receive Date: 20100113
  Receipt Date: 20100104
  Transmission Date: 20100710
  Serious: Yes (Other)
  Sender: FDA-Public Use
  Company Number: NL-ABBOTT-10P-114-0617521-00

PATIENT
  Age: 12 Year
  Sex: Male

DRUGS (9)
  1. DEPAKENE [Suspect]
     Indication: EPILEPSY
     Route: 048
     Dates: start: 20020101, end: 20090101
  2. DEPAKENE [Suspect]
     Route: 048
     Dates: start: 20090101, end: 20090101
  3. DEPAKENE [Suspect]
     Route: 048
     Dates: start: 20090101
  4. STIRIPENTOL [Concomitant]
     Indication: DRUG USE FOR UNKNOWN INDICATION
  5. FRISIUM [Concomitant]
     Indication: DRUG USE FOR UNKNOWN INDICATION
  6. LAMOTRIGINE [Concomitant]
     Indication: DRUG USE FOR UNKNOWN INDICATION
  7. TEGRETOL [Concomitant]
     Indication: DRUG USE FOR UNKNOWN INDICATION
  8. TOPAMAX [Concomitant]
     Indication: DRUG USE FOR UNKNOWN INDICATION
  9. TALOXA [Concomitant]
     Indication: DRUG USE FOR UNKNOWN INDICATION

REACTIONS (5)
  - ABNORMAL BEHAVIOUR [None]
  - CONVULSION [None]
  - INCREASED TENDENCY TO BRUISE [None]
  - MYOCLONUS [None]
  - WEIGHT DECREASED [None]
